FAERS Safety Report 5397385-9 (Version None)
Quarter: 2007Q3

REPORT INFORMATION
  Report Type: 
  Country: None (occurrence: None)
  Receive Date: 20070726
  Receipt Date: 20070720
  Transmission Date: 20080115
  Serious: Yes (Other)
  Sender: FDA-Public Use
  Company Number: PHEH2007US08345

PATIENT
  Age: 66 Year
  Sex: Female

DRUGS (4)
  1. ENABLEX [Suspect]
     Indication: MICTURITION URGENCY
     Dosage: 7.5 MG, QD
     Route: 048
     Dates: start: 20070524
  2. SYNTHROID [Concomitant]
  3. ATACAND [Concomitant]
  4. PREMARIN [Concomitant]

REACTIONS (3)
  - BLINDNESS [None]
  - SURGERY [None]
  - VISION BLURRED [None]
